FAERS Safety Report 19669154 (Version 3)
Quarter: 2021Q3

REPORT INFORMATION
  Report Type: Spontaneous
  Country: US (occurrence: US)
  Receive Date: 20210806
  Receipt Date: 20210916
  Transmission Date: 20211014
  Serious: Yes (Hospitalization)
  Sender: FDA-Public Use
  Company Number: US-ASTRAZENECA-2021A671386

PATIENT
  Age: 907 Month
  Sex: Female
  Weight: 88.9 kg

DRUGS (3)
  1. FASLODEX [Suspect]
     Active Substance: FULVESTRANT
     Indication: BREAST CANCER METASTATIC
     Route: 030
     Dates: start: 202105, end: 20210729
  2. IBRANCE [Suspect]
     Active Substance: PALBOCICLIB
     Indication: METASTASES TO CENTRAL NERVOUS SYSTEM
     Dosage: 125.0MG UNKNOWN
     Route: 048
  3. VITAMIN D [Concomitant]
     Active Substance: VITAMIN D NOS
     Indication: HOT FLUSH
     Route: 065

REACTIONS (6)
  - Troponin increased [Recovered/Resolved]
  - Fibrin D dimer increased [Recovered/Resolved]
  - Chest pain [Recovered/Resolved]
  - Myocarditis [Not Recovered/Not Resolved]
  - Pain in jaw [Recovered/Resolved]
  - Pain in extremity [Recovered/Resolved]

NARRATIVE: CASE EVENT DATE: 202107
